FAERS Safety Report 13879380 (Version 3)
Quarter: 2017Q4

REPORT INFORMATION
  Report Type: Spontaneous
  Country: US (occurrence: US)
  Receive Date: 20170817
  Receipt Date: 20171016
  Transmission Date: 20180320
  Serious: Yes (Hospitalization, Disabling, Other)
  Sender: FDA-Public Use
  Company Number: US-009507513-1708USA004265

PATIENT
  Sex: Female
  Weight: 117.91 kg

DRUGS (1)
  1. NUVARING [Suspect]
     Active Substance: ETHINYL ESTRADIOL\ETONOGESTREL
     Indication: CONTRACEPTION
     Dosage: 1 NEW RING FOR 3 WEEKS, REMOVE FOR 7 DAYS, REPEAT 4 WEEK CYCLE
     Route: 067
     Dates: start: 201410, end: 20150720

REACTIONS (4)
  - Abortion threatened [Unknown]
  - Hypertriglyceridaemia [Unknown]
  - Deep vein thrombosis [Unknown]
  - Pulmonary embolism [Unknown]

NARRATIVE: CASE EVENT DATE: 20150712
